FAERS Safety Report 9254921 (Version 3)
Quarter: 2013Q4

REPORT INFORMATION
  Report Type: Spontaneous
  Country: US (occurrence: US)
  Receive Date: 20130425
  Receipt Date: 20131004
  Transmission Date: 20140711
  Serious: Yes (Hospitalization)
  Sender: FDA-Public Use
  Company Number: US-ASTRAZENECA-2013SE27699

PATIENT
  Age: 58 Year
  Sex: Female
  Weight: 117.9 kg

DRUGS (16)
  1. NEXIUM [Suspect]
     Indication: GASTROOESOPHAGEAL REFLUX DISEASE
     Route: 048
     Dates: start: 2005, end: 2011
  2. NEXIUM [Suspect]
     Indication: GASTROOESOPHAGEAL REFLUX DISEASE
     Route: 048
     Dates: start: 20070105
  3. TUMS [Concomitant]
     Indication: GASTROOESOPHAGEAL REFLUX DISEASE
     Dosage: PRN, TWO TO THREE TABLETS
  4. ROLAIDS [Concomitant]
     Indication: GASTROOESOPHAGEAL REFLUX DISEASE
     Dosage: PRN, TWO TO THREE TABLETS
  5. NOVOLOG [Concomitant]
     Indication: DIABETES MELLITUS
  6. FUROSEMIDE [Concomitant]
     Indication: FLUID RETENTION
  7. ENAPRIL [Concomitant]
     Indication: BLOOD PRESSURE
  8. PROTONIX [Concomitant]
     Indication: GASTROOESOPHAGEAL REFLUX DISEASE
  9. SINGULAIR [Concomitant]
     Indication: MULTIPLE ALLERGIES
  10. GABAPENTIN [Concomitant]
     Indication: NEURALGIA
  11. LYRICA [Concomitant]
     Indication: NEURALGIA
  12. HYDROCODONE [Concomitant]
     Indication: PAIN
  13. ZYRTEC [Concomitant]
     Indication: MULTIPLE ALLERGIES
  14. NASONEX [Concomitant]
     Indication: MULTIPLE ALLERGIES
  15. CYCLOBENZAPRINE [Concomitant]
     Dates: start: 20030122
  16. LIPITOR [Concomitant]
     Dates: start: 20030702

REACTIONS (9)
  - Intervertebral disc degeneration [Unknown]
  - Spinal osteoarthritis [Unknown]
  - Osteoporosis [Unknown]
  - Bone disorder [Unknown]
  - Multiple fractures [Unknown]
  - General physical health deterioration [Unknown]
  - Arthritis [Unknown]
  - Cardiovascular disorder [Unknown]
  - Cervical spinal stenosis [Unknown]
